FAERS Safety Report 5503533-X (Version None)
Quarter: 2007Q4

REPORT INFORMATION
  Report Type: 
  Country: None (occurrence: None)
  Receive Date: 20071029
  Receipt Date: 20071011
  Transmission Date: 20080405
  Serious: Yes (Hospitalization)
  Sender: FDA-Public Use
  Company Number: 8026060

PATIENT
  Sex: Male

DRUGS (3)
  1. KEPPRA [Suspect]
     Indication: CONVULSION
     Dosage: 1000 MG 2/D PO
     Route: 048
     Dates: start: 20070401, end: 20070720
  2. KEPPRA [Suspect]
     Indication: CONVULSION
     Dosage: 750 MG 1/D PO
     Route: 048
     Dates: start: 20070701
  3. DEMECLOCYCLINE HCL [Suspect]
     Indication: BLOOD SODIUM DECREASED
     Dosage: 150 MG 4/D PO
     Route: 048
     Dates: start: 20070401, end: 20070720

REACTIONS (15)
  - AMNESIA [None]
  - ANOREXIA [None]
  - ATAXIA [None]
  - BALANCE DISORDER [None]
  - CONFUSIONAL STATE [None]
  - CONVULSION [None]
  - COORDINATION ABNORMAL [None]
  - DRUG INTERACTION [None]
  - NAUSEA [None]
  - ORAL INTAKE REDUCED [None]
  - RASH [None]
  - RENAL FAILURE ACUTE [None]
  - SOMNOLENCE [None]
  - TREMOR [None]
  - VOMITING [None]
